FAERS Safety Report 5569264-5 (Version None)
Quarter: 2007Q4

REPORT INFORMATION
  Report Type: 
  Country: None (occurrence: None)
  Receive Date: 20071220
  Receipt Date: 20071001
  Transmission Date: 20080405
  Serious: No
  Sender: FDA-Public Use
  Company Number: A0685319A

PATIENT
  Age: 66 Year
  Sex: Male

DRUGS (2)
  1. AVODART [Suspect]
     Indication: BENIGN PROSTATIC HYPERPLASIA
     Dosage: 1CAP PER DAY
     Route: 048
     Dates: start: 20070817
  2. FLOMAX [Concomitant]

REACTIONS (4)
  - BLOOD PRESSURE INCREASED [None]
  - ERECTILE DYSFUNCTION [None]
  - PARAESTHESIA [None]
  - SEMEN VOLUME DECREASED [None]
